FAERS Safety Report 7168980-1 (Version None)
Quarter: 2010Q4

REPORT INFORMATION
  Report Type: 
  Country: None (occurrence: None)
  Receive Date: 20101216
  Receipt Date: 20101206
  Transmission Date: 20110411
  Serious: Yes (Hospitalization)
  Sender: FDA-Public Use
  Company Number: JP-MYLANLABS-2010S1022256

PATIENT
  Age: 58 Year
  Sex: Male

DRUGS (3)
  1. APIXABAN [Suspect]
     Indication: THROMBOSIS PROPHYLAXIS
     Route: 048
     Dates: start: 20100917, end: 20100928
  2. PLACEBO [Suspect]
     Indication: THROMBOSIS PROPHYLAXIS
     Route: 048
     Dates: start: 20100917, end: 20100928
  3. BISOPROLOL FUMARATE [Suspect]
     Dates: start: 20100917, end: 20101003

REACTIONS (1)
  - HEPATIC FUNCTION ABNORMAL [None]
